FAERS Safety Report 8806356 (Version 1)
Quarter: 2012Q4

REPORT INFORMATION
  Report Type: Spontaneous
  Country: US (occurrence: None)
  Receive Date: 20120918
  Receipt Date: 20120918
  Transmission Date: 20130627
  Serious: No
  Sender: FDA-Public Use
  Company Number: None

PATIENT

DRUGS (1)
  1. FLUOROURACIL [Suspect]
     Dosage: 20 mg/mL bottle
     Route: 061

REACTIONS (3)
  - Medication error [None]
  - Drug label confusion [None]
  - Circumstance or information capable of leading to medication error [None]
